FAERS Safety Report 17663234 (Version 1)
Quarter: 2020Q2

REPORT INFORMATION
  Report Type: Spontaneous
  Country: US (occurrence: US)
  Receive Date: 20200414
  Receipt Date: 20200414
  Transmission Date: 20200713
  Serious: Yes (Other)
  Sender: FDA-Public Use
  Company Number: US-INCYTE CORPORATION-2020IN003392

PATIENT

DRUGS (1)
  1. JAKAFI [Suspect]
     Active Substance: RUXOLITINIB
     Indication: MYELOFIBROSIS
     Dosage: 20 MILLIGRAM (2 TABLETS), BID
     Route: 048

REACTIONS (13)
  - Palpitations [Unknown]
  - Heart valve incompetence [Unknown]
  - Hot flush [Recovered/Resolved]
  - Product dose omission [Unknown]
  - Fatigue [Unknown]
  - Acne [Recovered/Resolved]
  - Eye irritation [Recovered/Resolved]
  - Cardiac disorder [Unknown]
  - Influenza like illness [Recovered/Resolved]
  - Thirst [Unknown]
  - Heart rate increased [Unknown]
  - Burning sensation [Recovered/Resolved]
  - Cardiac flutter [Unknown]
